FAERS Safety Report 23844698 (Version 2)
Quarter: 2024Q4

REPORT INFORMATION
  Report Type: Report from Study
  Country: CA (occurrence: CA)
  Receive Date: 20240511
  Receipt Date: 20241108
  Transmission Date: 20250115
  Serious: Yes (Other)
  Sender: ABBVIE
  Company Number: CA-ABBVIE-5754422

PATIENT
  Age: 35 Year
  Sex: Female
  Weight: 56 kg

DRUGS (2)
  1. RINVOQ [Suspect]
     Active Substance: UPADACITINIB
     Indication: Crohn^s disease
     Dosage: FORM STRENGTH: 30 MILLIGRAM
     Route: 048
     Dates: start: 20240103
  2. RINVOQ [Suspect]
     Active Substance: UPADACITINIB
     Indication: Crohn^s disease
     Route: 048

REACTIONS (3)
  - Anal fistula [Unknown]
  - Acne [Unknown]
  - Arthralgia [Unknown]

NARRATIVE: CASE EVENT DATE: 20240101
